FAERS Safety Report 9278660 (Version 1)
Quarter: 2013Q2

REPORT INFORMATION
  Report Type: Spontaneous
  Country: US (occurrence: US)
  Receive Date: 20130508
  Receipt Date: 20130508
  Transmission Date: 20140414
  Serious: No
  Sender: FDA-Public Use
  Company Number: US-PFIZER INC-2013138879

PATIENT
  Age: 18 Year
  Sex: Male
  Weight: 70.3 kg

DRUGS (5)
  1. ADVIL [Suspect]
     Indication: MYALGIA
     Dosage: 2 DF, AS NEEDED
     Route: 048
     Dates: end: 20130320
  2. IBUPROFEN [Suspect]
     Indication: MYALGIA
     Dosage: UNK
     Dates: end: 20130320
  3. ACETYLSALICYLIC ACID [Suspect]
     Indication: MYALGIA
     Dosage: UNK
     Dates: end: 20130320
  4. TYLENOL [Suspect]
     Indication: MYALGIA
     Dosage: 650 MG, AS NEEDED
     Route: 048
     Dates: end: 20130320
  5. ALEVE [Suspect]
     Indication: MYALGIA
     Dosage: UNK
     Dates: end: 20130320

REACTIONS (1)
  - Drug screen positive [Unknown]
